FAERS Safety Report 8584596-4 (Version None)
Quarter: 2012Q3

REPORT INFORMATION
  Report Type: 
  Country: None (occurrence: None)
  Receive Date: 20120730
  Receipt Date: 20120718
  Transmission Date: 20120928
  Serious: Yes (Other)
  Sender: FDA-Public Use
  Company Number: CPI 3636

PATIENT
  Age: 25 Year
  Sex: Female

DRUGS (9)
  1. SUCCINYLCHOLINE CHLORIDE [Concomitant]
  2. DECADRON PHOSPHATE [Concomitant]
  3. ROCURONIUM BROMIDE [Concomitant]
  4. ZOFRAN [Concomitant]
  5. FENTANYL [Concomitant]
  6. CALDOLOR [Suspect]
     Indication: PAIN
     Dosage: 800MG 1-TIME IV
     Route: 042
     Dates: start: 20120716
  7. CALDOLOR [Suspect]
     Indication: POST PROCEDURAL COMPLICATION
     Dosage: 800MG 1-TIME IV
     Route: 042
     Dates: start: 20120716
  8. DILAUDID [Concomitant]
  9. PROPOFOL [Concomitant]

REACTIONS (4)
  - PROCEDURAL SITE REACTION [None]
  - THROMBOSIS [None]
  - SWELLING [None]
  - PAIN [None]
